FAERS Safety Report 16747792 (Version 1)
Quarter: 2019Q3

REPORT INFORMATION
  Report Type: Spontaneous
  Country: US (occurrence: US)
  Receive Date: 20190827
  Receipt Date: 20190827
  Transmission Date: 20191005
  Serious: Yes (Other)
  Sender: FDA-Public Use
  Company Number: US-MYLANLABS-2019M1077652

PATIENT
  Sex: Female
  Weight: 79 kg

DRUGS (2)
  1. CITALOPRAM [Suspect]
     Active Substance: CITALOPRAM HYDROBROMIDE
     Indication: DEPRESSION
     Dosage: 20 MILLIGRAM
     Route: 048
     Dates: start: 20030726, end: 20190626
  2. TACROLIMUS. [Concomitant]
     Active Substance: TACROLIMUS
     Indication: PROPHYLAXIS AGAINST TRANSPLANT REJECTION
     Dosage: UNK

REACTIONS (8)
  - Dehydration [Recovered/Resolved]
  - Irritable bowel syndrome [Recovered/Resolved]
  - Abdominal discomfort [Recovered/Resolved]
  - Abdominal pain [Recovered/Resolved]
  - Unevaluable event [Recovering/Resolving]
  - Diarrhoea [Recovered/Resolved]
  - Crying [Recovered/Resolved]
  - Vomiting [Recovered/Resolved]
